FAERS Safety Report 14432560 (Version 1)
Quarter: 2018Q1

REPORT INFORMATION
  Report Type: Spontaneous
  Country: GB (occurrence: GB)
  Receive Date: 20180124
  Receipt Date: 20180124
  Transmission Date: 20180509
  Serious: Yes (Other)
  Sender: FDA-Public Use
  Company Number: GB-PFIZER INC-2018027512

PATIENT
  Age: 40 Year
  Sex: Female
  Weight: 58 kg

DRUGS (1)
  1. IBUPROFEN. [Suspect]
     Active Substance: IBUPROFEN
     Dosage: UNK
     Dates: start: 20180103

REACTIONS (4)
  - Lip swelling [Unknown]
  - Eye swelling [Unknown]
  - Rash [Recovered/Resolved]
  - Ear swelling [Unknown]

NARRATIVE: CASE EVENT DATE: 201801
